FAERS Safety Report 9263417 (Version 1)
Quarter: 2013Q2

REPORT INFORMATION
  Report Type: Spontaneous
  Country: US (occurrence: None)
  Receive Date: 20130429
  Receipt Date: 20130429
  Transmission Date: 20140414
  Serious: Yes (Disabling)
  Sender: FDA-Public Use
  Company Number: None

PATIENT
  Age: 53 Year
  Sex: Female
  Weight: 45.36 kg

DRUGS (1)
  1. MERCAPTOPURINE [Suspect]
     Indication: COLITIS ULCERATIVE
     Dosage: 50MG 1/DAY ORAL
     Route: 048
     Dates: start: 20120615, end: 20130219

REACTIONS (2)
  - Arthralgia [None]
  - Activities of daily living impaired [None]
